FAERS Safety Report 11641880 (Version 2)
Quarter: 2015Q4

REPORT INFORMATION
  Report Type: Spontaneous
  Country: DE (occurrence: DE)
  Receive Date: 20151019
  Receipt Date: 20151103
  Transmission Date: 20160304
  Serious: Yes (Death, Other)
  Sender: FDA-Public Use
  Company Number: DE-TAKEDA-2015TUS014223

PATIENT
  Age: 57 Year
  Sex: Male

DRUGS (3)
  1. PREDNISOLONE. [Concomitant]
     Active Substance: PREDNISOLONE
     Indication: CROHN^S DISEASE
     Dosage: 25 MG, UNK
     Dates: start: 20150809
  2. SALOFALK                           /00747601/ [Concomitant]
     Active Substance: MESALAMINE
     Indication: CROHN^S DISEASE
     Dosage: 3 G, QD
     Dates: start: 20150617, end: 20150809
  3. ENTYVIO [Suspect]
     Active Substance: VEDOLIZUMAB
     Indication: CROHN^S DISEASE
     Dosage: 00 MG, UNK
     Route: 042
     Dates: start: 20150716, end: 20150716

REACTIONS (8)
  - Colonic abscess [Fatal]
  - Multi-organ failure [Unknown]
  - Abdominal adhesions [Fatal]
  - Sepsis [Fatal]
  - Peritonitis [Fatal]
  - Septic shock [Fatal]
  - Acute kidney injury [Unknown]
  - Disseminated intravascular coagulation [Unknown]

NARRATIVE: CASE EVENT DATE: 20150809
